FAERS Safety Report 6988865-0 (Version None)
Quarter: 2010Q3

REPORT INFORMATION
  Report Type: 
  Country: None (occurrence: None)
  Receive Date: 20100830
  Receipt Date: 20100727
  Transmission Date: 20110219
  Serious: No
  Sender: FDA-Public Use
  Company Number: 2010094948

PATIENT
  Age: 70 Year
  Sex: Female
  Weight: 90.7 kg

DRUGS (7)
  1. TOVIAZ [Suspect]
     Indication: POLLAKIURIA
     Dates: start: 20100401, end: 20100501
  2. TOVIAZ [Suspect]
     Indication: URINARY INCONTINENCE
     Dates: start: 20100401, end: 20100501
  3. DETROL [Suspect]
     Indication: POLLAKIURIA
     Dosage: 4 MG, 1X/DAY, ORAL
     Route: 048
     Dates: start: 20100501
  4. DETROL [Suspect]
     Indication: URINARY INCONTINENCE
     Dosage: 4 MG, 1X/DAY, ORAL
     Route: 048
     Dates: start: 20100501
  5. SERTRALINE (SERTRALINE) [Concomitant]
  6. IBANDRONATE SODIUM [Concomitant]
  7. WARFARIN SODIUM [Concomitant]

REACTIONS (2)
  - DRUG INEFFECTIVE [None]
  - URINARY TRACT INFECTION [None]
